FAERS Safety Report 24652048 (Version 1)
Quarter: 2024Q4

REPORT INFORMATION
  Report Type: Spontaneous
  Country: CA (occurrence: CA)
  Receive Date: 20241122
  Receipt Date: 20241122
  Transmission Date: 20250114
  Serious: Yes (Hospitalization)
  Sender: ALEXION PHARMACEUTICALS
  Company Number: None

PATIENT
  Age: 46 Year

DRUGS (9)
  1. ROSUVASTATIN [Suspect]
     Active Substance: ROSUVASTATIN
     Indication: Dyslipidaemia
     Dosage: 20 MILLIGRAM
     Route: 065
  2. ROSUVASTATIN [Suspect]
     Active Substance: ROSUVASTATIN
     Dosage: 20 MILLIGRAM
  3. ROSUVASTATIN [Suspect]
     Active Substance: ROSUVASTATIN
     Dosage: 20 MILLIGRAM
     Route: 065
  4. ROSUVASTATIN [Suspect]
     Active Substance: ROSUVASTATIN
     Dosage: 20 MILLIGRAM
  5. LITHIUM [Suspect]
     Active Substance: LITHIUM
     Indication: Mania
     Dosage: 1800 MILLIGRAM, QD
  6. LITHIUM [Suspect]
     Active Substance: LITHIUM
     Dosage: 1800 MILLIGRAM, QD
     Route: 065
  7. PSYLLIUM [Suspect]
     Active Substance: PLANTAGO SEED
     Indication: Decreased appetite
  8. PSYLLIUM [Suspect]
     Active Substance: PLANTAGO SEED
     Route: 065
  9. A.vogel multivitamin [Concomitant]

REACTIONS (3)
  - Abnormal behaviour [Recovering/Resolving]
  - Herbal interaction [Recovering/Resolving]
  - Job change [Recovering/Resolving]
